FAERS Safety Report 18712591 (Version 1)
Quarter: 2021Q1

REPORT INFORMATION
  Report Type: Spontaneous
  Country: IQ (occurrence: IQ)
  Receive Date: 20210107
  Receipt Date: 20210107
  Transmission Date: 20210419
  Serious: Yes (Other)
  Sender: FDA-Public Use
  Company Number: NVSC2021IQ002354

PATIENT
  Age: 64 Year
  Sex: Female

DRUGS (6)
  1. DIGOXIN. [Interacting]
     Active Substance: DIGOXIN
     Indication: MITRAL VALVE PROLAPSE
     Dosage: 0.25 MG, QD
     Route: 065
  2. DIGOXIN. [Interacting]
     Active Substance: DIGOXIN
     Indication: ATRIAL FIBRILLATION
  3. HYDROXYCHLOROQUINE [Suspect]
     Active Substance: HYDROXYCHLOROQUINE
     Indication: CORONAVIRUS INFECTION
     Dosage: 200 MG, BID
     Route: 065
  4. WARFARIN [Interacting]
     Active Substance: WARFARIN
     Indication: MITRAL VALVE PROLAPSE
     Dosage: 5 MG, QD
     Route: 065
  5. WARFARIN [Interacting]
     Active Substance: WARFARIN
     Indication: ATRIAL FIBRILLATION
  6. AZITHROMYCIN ANHYDROUS. [Interacting]
     Active Substance: AZITHROMYCIN ANHYDROUS
     Indication: CORONAVIRUS INFECTION
     Dosage: 500 MG, QD
     Route: 065

REACTIONS (5)
  - Atrioventricular block complete [Unknown]
  - Electrocardiogram QT prolonged [Unknown]
  - Potentiating drug interaction [Unknown]
  - Toxicity to various agents [Unknown]
  - Product use in unapproved indication [Unknown]
